FAERS Safety Report 8780393 (Version 1)
Quarter: 2012Q4

REPORT INFORMATION
  Report Type: Spontaneous
  Country: TW (occurrence: None)
  Receive Date: 20120828
  Receipt Date: 20120828
  Transmission Date: 20130627
  Serious: Yes (Other)
  Sender: FDA-Public Use
  Company Number: FK201202399

PATIENT
  Age: 53 Year
  Sex: Male

DRUGS (2)
  1. VANCOMYCIN [Suspect]
     Route: 042
  2. TEICOPLANIN [Suspect]
     Route: 042

REACTIONS (4)
  - Cross sensitivity reaction [None]
  - Drug hypersensitivity [None]
  - Leukopenia [None]
  - Neutropenia [None]
